FAERS Safety Report 24412951 (Version 2)
Quarter: 2024Q4

REPORT INFORMATION
  Report Type: Report from Study
  Country: US (occurrence: US)
  Receive Date: 20241008
  Receipt Date: 20241217
  Transmission Date: 20250114
  Serious: Yes (Other)
  Sender: NOVARTIS
  Company Number: US-002147023-NVSC2024US197153

PATIENT
  Sex: Female

DRUGS (2)
  1. KESIMPTA [Suspect]
     Active Substance: OFATUMUMAB
     Indication: Product used for unknown indication
     Dosage: 20 MG, QMO
     Route: 058
     Dates: start: 20240919
  2. KESIMPTA [Suspect]
     Active Substance: OFATUMUMAB
     Dosage: 20 MG, QMO
     Route: 058
     Dates: start: 20240926

REACTIONS (6)
  - Multiple sclerosis [Unknown]
  - Dyspnoea [Unknown]
  - Blood pressure increased [Recovered/Resolved]
  - Headache [Unknown]
  - Chest pain [Recovered/Resolved]
  - Chest discomfort [Not Recovered/Not Resolved]
